FAERS Safety Report 23520173 (Version 1)
Quarter: 2024Q1

REPORT INFORMATION
  Report Type: Other
  Country: CN (occurrence: CN)
  Receive Date: 20240214
  Receipt Date: 20240214
  Transmission Date: 20240409
  Serious: Yes (Life-Threatening, Hospitalization, Other)
  Sender: FDA-Public Use
  Company Number: CN-GE HEALTHCARE-2024CSU001242

PATIENT
  Age: 55 Year
  Sex: Male
  Weight: 62 kg

DRUGS (1)
  1. VISIPAQUE [Suspect]
     Active Substance: IODIXANOL
     Indication: Angiogram cerebral
     Dosage: 20 ML, TOTAL
     Route: 013
     Dates: start: 20240130, end: 20240130

REACTIONS (11)
  - Foaming at mouth [Recovering/Resolving]
  - Dysphoria [Recovering/Resolving]
  - Anaphylactic shock [Recovering/Resolving]
  - Confusional state [Recovering/Resolving]
  - Blood pressure decreased [Recovering/Resolving]
  - Flushing [Recovering/Resolving]
  - Heart rate increased [Recovering/Resolving]
  - Chest discomfort [Recovering/Resolving]
  - Cough [Recovering/Resolving]
  - Hyperhidrosis [Recovering/Resolving]
  - Oedema [Recovering/Resolving]

NARRATIVE: CASE EVENT DATE: 20240130
